FAERS Safety Report 5187180-8 (Version None)
Quarter: 2006Q4

REPORT INFORMATION
  Report Type: 
  Country: None (occurrence: None)
  Receive Date: 20061214
  Receipt Date: 20061201
  Transmission Date: 20070319
  Serious: Yes (Other)
  Sender: FDA-Public Use
  Company Number: 2006150844

PATIENT
  Age: 46 Year
  Sex: Male

DRUGS (2)
  1. DEPO-TESTOSTERONE [Suspect]
     Dosage: (1 ML, 1 CC EVERY 3 WEEKS), INTRAMUSCULAR
     Route: 030
     Dates: start: 19810101
  2. VALSARTAN [Concomitant]

REACTIONS (3)
  - HAND FRACTURE [None]
  - HERNIA [None]
  - OSTEOPOROSIS [None]
